FAERS Safety Report 4868509-4 (Version None)
Quarter: 2005Q4

REPORT INFORMATION
  Report Type: 
  Country: None (occurrence: None)
  Receive Date: 20051223
  Receipt Date: 20051213
  Transmission Date: 20060501
  Serious: Yes (Other)
  Sender: FDA-Public Use
  Company Number: 2005169174

PATIENT
  Sex: Male
  Weight: 79.3795 kg

DRUGS (2)
  1. VIAGRA [Suspect]
     Indication: ERECTILE DYSFUNCTION
     Dosage: (100 MG),
     Dates: start: 20020101
  2. LEXAPRO [Concomitant]

REACTIONS (1)
  - CARDIAC MURMUR [None]
